FAERS Safety Report 25073366 (Version 1)
Quarter: 2025Q1

REPORT INFORMATION
  Report Type: Spontaneous
  Country: US (occurrence: US)
  Receive Date: 20250313
  Receipt Date: 20250313
  Transmission Date: 20250408
  Serious: No
  Sender: AMGEN
  Company Number: US-AMGEN-USASP2025050569

PATIENT
  Sex: Male

DRUGS (3)
  1. IMDELLTRA [Suspect]
     Active Substance: TARLATAMAB-DLLE
     Indication: Product used for unknown indication
     Route: 065
  2. IMDELLTRA [Suspect]
     Active Substance: TARLATAMAB-DLLE
     Route: 065
  3. IMDELLTRA [Suspect]
     Active Substance: TARLATAMAB-DLLE
     Route: 065

REACTIONS (2)
  - Headache [Unknown]
  - Pyrexia [Unknown]
